FAERS Safety Report 10949778 (Version 1)
Quarter: 2015Q1

REPORT INFORMATION
  Report Type: Spontaneous
  Country: US (occurrence: None)
  Receive Date: 20150323
  Receipt Date: 20150323
  Transmission Date: 20150721
  Serious: No
  Sender: FDA-Public Use
  Company Number: None

PATIENT
  Age: 75 Year
  Sex: Male

DRUGS (1)
  1. TASIGNA [Suspect]
     Active Substance: NILOTINIB
     Indication: MYELOID LEUKAEMIA
     Dosage: 150 MG 2 CAPS TWICE DAY ORAL
     Route: 048
     Dates: start: 20140305, end: 20150320

REACTIONS (1)
  - Extra dose administered [None]

NARRATIVE: CASE EVENT DATE: 20150320
